FAERS Safety Report 7563295-1 (Version None)
Quarter: 2011Q2

REPORT INFORMATION
  Report Type: 
  Country: None (occurrence: None)
  Receive Date: 20110622
  Receipt Date: 20090623
  Transmission Date: 20111010
  Serious: Yes (Hospitalization)
  Sender: FDA-Public Use
  Company Number: A0794444A

PATIENT
  Age: 55 Year
  Sex: Male

DRUGS (2)
  1. AVANDAMET [Suspect]
     Indication: DIABETES MELLITUS
     Route: 048
  2. AVANDIA [Suspect]
     Indication: DIABETES MELLITUS
     Route: 048
     Dates: start: 20020101

REACTIONS (5)
  - PERIPHERAL ARTERIAL OCCLUSIVE DISEASE [None]
  - STENT PLACEMENT [None]
  - CARDIOVASCULAR DISORDER [None]
  - CORONARY ARTERY BYPASS [None]
  - ARTERIAL OCCLUSIVE DISEASE [None]
